FAERS Safety Report 11808693 (Version 1)
Quarter: 2015Q4

REPORT INFORMATION
  Report Type: Spontaneous
  Country: US (occurrence: US)
  Receive Date: 20151207
  Receipt Date: 20151207
  Transmission Date: 20160305
  Serious: No
  Sender: FDA-Public Use
  Company Number: US-ROCHE-1609157

PATIENT
  Sex: Female

DRUGS (25)
  1. AMITRIPTYLINE [Concomitant]
     Active Substance: AMITRIPTYLINE
  2. ULTRAM [Concomitant]
     Active Substance: TRAMADOL HYDROCHLORIDE
  3. VALIUM [Suspect]
     Active Substance: DIAZEPAM
     Indication: NAUSEA
     Route: 065
  4. DILAUDID [Concomitant]
     Active Substance: HYDROMORPHONE HYDROCHLORIDE
  5. MAXALT [Concomitant]
     Active Substance: RIZATRIPTAN BENZOATE
     Indication: MYALGIA
  6. TALWIN [Concomitant]
     Active Substance: PENTAZOCINE LACTATE
     Indication: NAUSEA
  7. DARVOCET [Concomitant]
     Active Substance: ACETAMINOPHEN\PROPOXYPHENE HYDROCHLORIDE
     Indication: URTICARIA
  8. DOLOBID [Concomitant]
     Active Substance: DIFLUNISAL
     Indication: RASH
  9. MACROBID (UNITED STATES) [Concomitant]
     Indication: RASH
  10. PREDNISONE. [Concomitant]
     Active Substance: PREDNISONE
  11. TRIMETHOPRIM. [Concomitant]
     Active Substance: TRIMETHOPRIM
     Indication: RASH
  12. HYDROCHLOROTHIAZIDE. [Concomitant]
     Active Substance: HYDROCHLOROTHIAZIDE
     Indication: RASH
  13. VICODIN [Concomitant]
     Active Substance: ACETAMINOPHEN\HYDROCODONE BITARTRATE
  14. XALATAN [Concomitant]
     Active Substance: LATANOPROST
     Route: 047
     Dates: start: 20150709
  15. CRESTOR [Concomitant]
     Active Substance: ROSUVASTATIN CALCIUM
     Indication: RASH
  16. LEVOFLOXACIN. [Concomitant]
     Active Substance: LEVOFLOXACIN
     Indication: SWELLING
  17. MORPHINE [Concomitant]
     Active Substance: MORPHINE
     Indication: NAUSEA
  18. DEMEROL [Concomitant]
     Active Substance: MEPERIDINE HYDROCHLORIDE
  19. DAYPRO [Concomitant]
     Active Substance: OXAPROZIN
     Indication: RASH
  20. CRESTOR [Concomitant]
     Active Substance: ROSUVASTATIN CALCIUM
     Indication: MYALGIA
  21. LYRICA [Concomitant]
     Active Substance: PREGABALIN
     Indication: SWELLING
     Route: 065
  22. KEPPRA [Concomitant]
     Active Substance: LEVETIRACETAM
     Indication: PRURITUS
  23. PENICILLINS [Concomitant]
     Active Substance: PENICILLIN
     Indication: URTICARIA
  24. NEURONTIN [Concomitant]
     Active Substance: GABAPENTIN
     Indication: PRODUCT USED FOR UNKNOWN INDICATION
     Route: 065
  25. MORPHINE [Concomitant]
     Active Substance: MORPHINE
     Indication: VOMITING

REACTIONS (1)
  - Drug hypersensitivity [Unknown]
